FAERS Safety Report 6349588-4 (Version None)
Quarter: 2009Q3

REPORT INFORMATION
  Report Type: 
  Country: None (occurrence: None)
  Receive Date: 20090911
  Receipt Date: 20090831
  Transmission Date: 20100115
  Serious: Yes (Other)
  Sender: FDA-Public Use
  Company Number: PHHY2009MX37306

PATIENT
  Age: 68 Year
  Sex: Male

DRUGS (1)
  1. DIOVAN HCT [Suspect]
     Indication: HYPERTENSION
     Dosage: 1 TABLET (160/25MG ) PER DAY
     Dates: end: 20090501

REACTIONS (1)
  - EMBOLISM [None]
